FAERS Safety Report 15256689 (Version 3)
Quarter: 2021Q3

REPORT INFORMATION
  Report Type: Report from Study
  Country: BR (occurrence: BR)
  Receive Date: 20180808
  Receipt Date: 20210921
  Transmission Date: 20211014
  Serious: Yes (Hospitalization, Other)
  Sender: FDA-Public Use
  Company Number: BR-TAKEDA-2018TUS010205

PATIENT
  Age: 35 Year
  Sex: Male

DRUGS (4)
  1. INFLIXIMAB [Concomitant]
     Active Substance: INFLIXIMAB
     Indication: CROHN^S DISEASE
     Dosage: UNK UNK, Q8WEEKS
     Route: 042
     Dates: start: 201607, end: 2018
  2. MESALAZINE [Concomitant]
     Active Substance: MESALAMINE
     Indication: CROHN^S DISEASE
     Dosage: 1000 MILLIGRAM, QD
     Route: 048
     Dates: start: 2003, end: 2018
  3. AZATHIOPRINE. [Concomitant]
     Active Substance: AZATHIOPRINE
     Indication: CROHN^S DISEASE
     Dosage: 20 MILLIGRAM, QD
     Route: 048
     Dates: start: 2017, end: 2018
  4. VEDOLIZUMAB [Suspect]
     Active Substance: VEDOLIZUMAB
     Indication: CROHN^S DISEASE
     Dosage: 300 MILLIGRAM
     Route: 042
     Dates: start: 20170822

REACTIONS (2)
  - Off label use [Unknown]
  - Intestinal stenosis [Recovered/Resolved]

NARRATIVE: CASE EVENT DATE: 20171206
